FAERS Safety Report 19284713 (Version 1)
Quarter: 2021Q2

REPORT INFORMATION
  Report Type: Spontaneous
  Country: US (occurrence: US)
  Receive Date: 20210519
  Receipt Date: 20210519
  Transmission Date: 20210717
  Serious: Yes (Other)
  Sender: FDA-Public Use
  Company Number: None

PATIENT
  Age: 65 Year
  Sex: Female
  Weight: 130.5 kg

DRUGS (13)
  1. VITAMIN B6 [Concomitant]
     Active Substance: PYRIDOXINE HYDROCHLORIDE
  2. VITAMIN B12 [Concomitant]
     Active Substance: CYANOCOBALAMIN
  3. AMLODIPINE [Concomitant]
     Active Substance: AMLODIPINE BESYLATE
  4. CLONIDINE. [Concomitant]
     Active Substance: CLONIDINE
  5. HYDROCHLOROTHIAZIDE. [Concomitant]
     Active Substance: HYDROCHLOROTHIAZIDE
  6. PEG ?3350 + ELECTROLYTES QUANTITY 400  (COLON PREP) [Suspect]
     Active Substance: ELECTROLYTES NOS\POLYETHYLENE GLYCOL 3350
     Indication: COLONOSCOPY
     Dosage: ?          OTHER FREQUENCY:GLASS EVERY 20MIN;?
     Route: 048
     Dates: start: 20210426, end: 20210426
  7. ALLOPURINOL. [Concomitant]
     Active Substance: ALLOPURINOL
  8. POTASSIUM [Concomitant]
     Active Substance: POTASSIUM
  9. GLUCOSAMINE CHONDROITIN [Concomitant]
     Active Substance: CHONDROITIN SULFATE (BOVINE)\GLUCOSAMINE HYDROCHLORIDE
  10. VITAMIN D [Concomitant]
     Active Substance: VITAMIN D NOS
  11. FISH OIL [Concomitant]
     Active Substance: FISH OIL
  12. TURMERIC [Concomitant]
     Active Substance: HERBALS\TURMERIC
  13. PEG ?3350 + ELECTROLYTES QUANTITY 400  (COLON PREP) [Suspect]
     Active Substance: ELECTROLYTES NOS\POLYETHYLENE GLYCOL 3350
     Indication: BOWEL PREPARATION
     Dosage: ?          OTHER FREQUENCY:GLASS EVERY 20MIN;?
     Route: 048
     Dates: start: 20210426, end: 20210426

REACTIONS (4)
  - Heart rate increased [None]
  - Nervousness [None]
  - Hypertension [None]
  - Flushing [None]

NARRATIVE: CASE EVENT DATE: 20210426
